FAERS Safety Report 23985740 (Version 1)
Quarter: 2024Q2

REPORT INFORMATION
  Report Type: Spontaneous
  Country: US (occurrence: None)
  Receive Date: 20240617
  Receipt Date: 20240617
  Transmission Date: 20240715
  Serious: Yes (Hospitalization)
  Sender: FDA-Public Use
  Company Number: None

PATIENT
  Sex: Female

DRUGS (3)
  1. EPOPROSTENOL [Suspect]
     Active Substance: EPOPROSTENOL
     Indication: Pulmonary arterial hypertension
     Dosage: 20 NG/KG/MIN CONTINUOUS IV
     Route: 042
     Dates: start: 202312
  2. DEVICE [Concomitant]
     Active Substance: DEVICE
  3. SODIUM CHLOR INJ [Concomitant]

REACTIONS (1)
  - Obstruction [None]
